FAERS Safety Report 7762625-5 (Version None)
Quarter: 2011Q3

REPORT INFORMATION
  Report Type: 
  Country: None (occurrence: None)
  Receive Date: 20110920
  Receipt Date: 20110825
  Transmission Date: 20111222
  Serious: Yes (Hospitalization)
  Sender: FDA-Public Use
  Company Number: ES-VIIV HEALTHCARE LIMITED-B0743495A

PATIENT
  Sex: Male
  Weight: 62 kg

DRUGS (12)
  1. MARAVIROC [Suspect]
     Indication: HIV INFECTION
     Dosage: 300MG TWICE PER DAY
     Dates: start: 20090611
  2. CEFTRIAXONE [Concomitant]
     Dates: start: 20110522, end: 20110531
  3. LINEZOLID [Concomitant]
     Dates: start: 20110531, end: 20110607
  4. CIPROFLOXACIN HCL [Concomitant]
     Dates: start: 20110616, end: 20110620
  5. HIDROFEROL [Concomitant]
     Dates: start: 20110411, end: 20110801
  6. BEMIPARIN [Concomitant]
     Dates: start: 20110611, end: 20110727
  7. MORPHINE [Concomitant]
     Dates: start: 20110801
  8. DARUNAVIR [Suspect]
     Indication: HIV INFECTION
     Dosage: 900MG PER DAY
     Dates: start: 20090611
  9. RITONAVIR [Suspect]
     Indication: HIV INFECTION
     Dosage: 100MG PER DAY
     Dates: start: 20090611
  10. OMEPRAZOLE [Concomitant]
     Dates: start: 20100611
  11. ERTAPENEM [Concomitant]
     Dates: start: 20110620
  12. IBUPROFEN [Concomitant]
     Dates: start: 20100611

REACTIONS (4)
  - NEOPLASM PROSTATE [None]
  - INFECTED NEOPLASM [None]
  - RECTAL NEOPLASM [None]
  - BLADDER NEOPLASM [None]
